FAERS Safety Report 9247503 (Version 1)
Quarter: 2013Q2

REPORT INFORMATION
  Report Type: Spontaneous
  Country: JP (occurrence: JP)
  Receive Date: 20130423
  Receipt Date: 20130423
  Transmission Date: 20140414
  Serious: Yes (Other)
  Sender: FDA-Public Use
  Company Number: JP-ASTELLAS-2013JP005266

PATIENT
  Age: 52 Year
  Sex: Female

DRUGS (6)
  1. PROGRAF [Suspect]
     Indication: MUSCULAR DYSTROPHY
     Dosage: 3 MG, UNKNOWN/D
     Route: 065
  2. PREDNISOLONE [Concomitant]
     Indication: MUSCULAR DYSTROPHY
     Dosage: 45 MG, UNKNOWN/D
     Route: 065
  3. PREDNISOLONE [Concomitant]
     Dosage: 17.5 MG, UNKNOWN/D
     Route: 065
  4. PREDNISOLONE [Concomitant]
     Dosage: 60 MG, UNKNOWN/D
     Route: 065
  5. CICLOSPORIN [Concomitant]
     Indication: MUSCULAR DYSTROPHY
     Dosage: 150 MG, UNKNOWN/D
     Route: 065
  6. CICLOSPORIN [Concomitant]
     Dosage: 350 MG, UNKNOWN/D
     Route: 065

REACTIONS (2)
  - Drug ineffective for unapproved indication [Unknown]
  - Muscular dystrophy [Unknown]
